FAERS Safety Report 6190410-7 (Version None)
Quarter: 2009Q2

REPORT INFORMATION
  Report Type: 
  Country: None (occurrence: None)
  Receive Date: 20090514
  Receipt Date: 20090507
  Transmission Date: 20091009
  Serious: Yes (Other)
  Sender: FDA-Public Use
  Company Number: US-ASTRAZENECA-2009UW11729

PATIENT

DRUGS (2)
  1. SEROQUEL XR [Suspect]
     Route: 048
  2. ATENOLOL [Suspect]
     Route: 048

REACTIONS (1)
  - ATRIAL FIBRILLATION [None]
